FAERS Safety Report 8459932-X (Version None)
Quarter: 2012Q2

REPORT INFORMATION
  Report Type: 
  Country: None (occurrence: None)
  Receive Date: 20120622
  Receipt Date: 20120619
  Transmission Date: 20120825
  Serious: Yes (Other)
  Sender: FDA-Public Use
  Company Number: PHEH2012US008216

PATIENT
  Sex: Female

DRUGS (2)
  1. ABILIFY [Suspect]
  2. GILENYA [Suspect]
     Indication: MULTIPLE SCLEROSIS
     Dosage: 0.5 MG, DAILY
     Route: 048
     Dates: start: 20110418

REACTIONS (7)
  - CHEST PAIN [None]
  - BLOOD PRESSURE SYSTOLIC INCREASED [None]
  - NAUSEA [None]
  - PALPITATIONS [None]
  - BLOOD PRESSURE DIASTOLIC INCREASED [None]
  - INSOMNIA [None]
  - COUGH [None]
